FAERS Safety Report 23585341 (Version 1)
Quarter: 2024Q1

REPORT INFORMATION
  Report Type: Spontaneous
  Country: US (occurrence: US)
  Receive Date: 20240301
  Receipt Date: 20240301
  Transmission Date: 20240410
  Serious: No
  Sender: FDA-Public Use
  Company Number: US-BAYER-2024A020247

PATIENT
  Age: 61 Year
  Sex: Female

DRUGS (2)
  1. MIRALAX [Suspect]
     Active Substance: POLYETHYLENE GLYCOL 3350
     Indication: Gastrointestinal disorder
     Dosage: A LARGE TABLESPOON DOSE
     Route: 048
  2. MIRALAX [Suspect]
     Active Substance: POLYETHYLENE GLYCOL 3350
     Indication: Irritable bowel syndrome

REACTIONS (3)
  - Product packaging difficult to open [Unknown]
  - Drug effective for unapproved indication [Unknown]
  - Pain in extremity [Unknown]
